FAERS Safety Report 20331054 (Version 1)
Quarter: 2022Q1

REPORT INFORMATION
  Report Type: Spontaneous
  Country: US (occurrence: None)
  Receive Date: 20220112
  Receipt Date: 20220112
  Transmission Date: 20220424
  Serious: Yes (Hospitalization)
  Sender: FDA-Public Use
  Company Number: None

PATIENT
  Age: 60 Year
  Sex: Female

DRUGS (11)
  1. REBIF [Suspect]
     Active Substance: INTERFERON BETA-1A
     Indication: Multiple sclerosis
     Route: 058
     Dates: start: 20150707
  2. ADVIL CAP [Concomitant]
  3. ADVIL MIGRAI CAP [Concomitant]
  4. ALEVE TAB [Concomitant]
  5. AVIANE TAB [Concomitant]
  6. CITALOPRAM TAB [Concomitant]
  7. FOLIC ACID TAB [Concomitant]
  8. LEVONOR/ETHI TAB [Concomitant]
  9. LEVOTHYROXIN TAB [Concomitant]
  10. LEVOTHYROXIN TAB [Concomitant]
  11. REBIF INJ [Concomitant]

REACTIONS (2)
  - Hospitalisation [None]
  - Therapy interrupted [None]

NARRATIVE: CASE EVENT DATE: 20211221
